FAERS Safety Report 17663108 (Version 1)
Quarter: 2020Q2

REPORT INFORMATION
  Report Type: Spontaneous
  Country: RU (occurrence: RU)
  Receive Date: 20200414
  Receipt Date: 20200414
  Transmission Date: 20200713
  Serious: Yes (Death)
  Sender: FDA-Public Use
  Company Number: RU-SUN PHARMACEUTICAL INDUSTRIES LTD-2020R1-242944

PATIENT
  Age: 13 Year

DRUGS (6)
  1. FLUCONAZOLE. [Suspect]
     Active Substance: FLUCONAZOLE
     Indication: ANTIFUNGAL PROPHYLAXIS
     Dosage: UNK
     Route: 065
  2. VANCOMYCIN HYDROCHLORIDE. [Suspect]
     Active Substance: VANCOMYCIN HYDROCHLORIDE
     Indication: ANTIFUNGAL PROPHYLAXIS
     Dosage: UNK
     Route: 065
  3. MEROPENEM. [Suspect]
     Active Substance: MEROPENEM
     Indication: ANTIFUNGAL PROPHYLAXIS
     Dosage: UNK
     Route: 065
  4. DOXORUBICIN [Suspect]
     Active Substance: DOXORUBICIN
     Indication: ANTIFUNGAL PROPHYLAXIS
     Dosage: UNK
     Route: 065
  5. AMPHOTERICIN B LIPOSOME [Suspect]
     Active Substance: AMPHOTERICIN B
     Indication: ANTIFUNGAL PROPHYLAXIS
     Dosage: UNK
     Route: 065
  6. POLYMIXIN-B [Suspect]
     Active Substance: POLYMYXIN B
     Indication: ANTIFUNGAL PROPHYLAXIS
     Dosage: UNK
     Route: 065

REACTIONS (1)
  - Drug ineffective [Fatal]
